FAERS Safety Report 14038356 (Version 2)
Quarter: 2018Q2

REPORT INFORMATION
  Report Type: Spontaneous
  Country: FR (occurrence: FR)
  Receive Date: 20171004
  Receipt Date: 20180423
  Transmission Date: 20180711
  Serious: Yes (Death, Life-Threatening, Congenital Anomaly)
  Sender: FDA-Public Use
  Company Number: PHHY2017FR145454

PATIENT
  Sex: Male
  Weight: 3.5 kg

DRUGS (1)
  1. SERTRALINE [Suspect]
     Active Substance: SERTRALINE HYDROCHLORIDE
     Indication: FOETAL EXPOSURE DURING PREGNANCY
     Dosage: MATERNAL DOSE: 75 MG, QD
     Route: 064
     Dates: start: 20160813, end: 20170518

REACTIONS (4)
  - Congenital diaphragmatic hernia [Fatal]
  - Abdominal distension [Recovered/Resolved]
  - Pulmonary hypoplasia [Fatal]
  - Polyhydramnios [Recovered/Resolved]

NARRATIVE: CASE EVENT DATE: 20170224
